FAERS Safety Report 10969876 (Version 1)
Quarter: 2015Q1

REPORT INFORMATION
  Report Type: Spontaneous
  Country: IT (occurrence: None)
  Receive Date: 20150327
  Receipt Date: 20150327
  Transmission Date: 20150721
  Serious: Yes (Other)
  Sender: FDA-Public Use
  Company Number: B0971509A

PATIENT
  Age: 21 Year
  Sex: Female

DRUGS (3)
  1. CYCLOPHOSPHAMIDE (FORMULATION UNKNOWN) (CYCLOPHOSPHAMIDE) [Suspect]
     Active Substance: CYCLOPHOSPHAMIDE
     Indication: T-CELL TYPE ACUTE LEUKAEMIA
  2. NELARABINE [Suspect]
     Active Substance: NELARABINE
     Indication: T-CELL TYPE ACUTE LEUKAEMIA
  3. ETOPOSIDE. [Suspect]
     Active Substance: ETOPOSIDE
     Indication: T-CELL TYPE ACUTE LEUKAEMIA

REACTIONS (4)
  - Toxic epidermal necrolysis [None]
  - Cystitis haemorrhagic [None]
  - Polyomavirus test positive [None]
  - Stevens-Johnson syndrome [None]
